FAERS Safety Report 7428305-0 (Version None)
Quarter: 2011Q2

REPORT INFORMATION
  Report Type: 
  Country: None (occurrence: None)
  Receive Date: 20110421
  Receipt Date: 20110414
  Transmission Date: 20111010
  Serious: No
  Sender: FDA-Public Use
  Company Number: US-BIOGENIDEC-2011BI014538

PATIENT
  Age: 30 Year
  Sex: Female

DRUGS (6)
  1. TYSABRI [Suspect]
     Route: 042
     Dates: start: 20080703, end: 20100320
  2. TYSABRI [Suspect]
     Indication: MULTIPLE SCLEROSIS
     Route: 042
     Dates: start: 20110304
  3. TYSABRI [Suspect]
     Route: 042
     Dates: start: 20070316, end: 20070511
  4. AVONEX [Concomitant]
     Indication: MULTIPLE SCLEROSIS
     Route: 030
     Dates: start: 20100806
  5. AVONEX [Concomitant]
     Route: 030
     Dates: start: 20070601
  6. AVONEX [Concomitant]
     Route: 030
     Dates: start: 20050621

REACTIONS (9)
  - MUSCULAR WEAKNESS [None]
  - DYSARTHRIA [None]
  - HEART RATE INCREASED [None]
  - EMOTIONAL DISORDER [None]
  - ANXIETY [None]
  - COGNITIVE DISORDER [None]
  - HYPOAESTHESIA [None]
  - MENSTRUATION DELAYED [None]
  - ABASIA [None]
